FAERS Safety Report 24065923 (Version 1)
Quarter: 2024Q3

REPORT INFORMATION
  Report Type: Spontaneous
  Country: US (occurrence: US)
  Receive Date: 20240709
  Receipt Date: 20240709
  Transmission Date: 20241016
  Serious: No
  Sender: VIRTUS PHARMACEUTICALS
  Company Number: US-VIRTUS PHARMACEUTICALS, LLC-2023VTS00043

PATIENT
  Sex: Female

DRUGS (1)
  1. PROGESTERONE [Suspect]
     Active Substance: PROGESTERONE
     Dosage: 200 MG

REACTIONS (1)
  - Drug ineffective [Unknown]
